FAERS Safety Report 7782707-1 (Version None)
Quarter: 2011Q3

REPORT INFORMATION
  Report Type: 
  Country: None (occurrence: None)
  Receive Date: 20110928
  Receipt Date: 20110922
  Transmission Date: 20111222
  Serious: Yes (Hospitalization)
  Sender: FDA-Public Use
  Company Number: FR-AMGEN-FRANI2011045937

PATIENT
  Age: 55 Year
  Sex: Male

DRUGS (2)
  1. PANITUMUMAB [Suspect]
     Indication: COLORECTAL CANCER METASTATIC
     Dosage: 6 MG/KG, UNK
     Route: 042
     Dates: start: 20110705
  2. MORPHINE SULFATE [Concomitant]
     Dosage: 180 MG, QD
     Route: 048
     Dates: start: 20110829

REACTIONS (3)
  - METASTASES TO LIVER [None]
  - OEDEMA PERIPHERAL [None]
  - HEPATIC PAIN [None]
